FAERS Safety Report 4502437-9 (Version None)
Quarter: 2004Q4

REPORT INFORMATION
  Report Type: 
  Country: None (occurrence: None)
  Receive Date: 20041112
  Receipt Date: 20041026
  Transmission Date: 20050328
  Serious: No
  Sender: FDA-Public Use
  Company Number: 9184

PATIENT
  Age: 35 Year
  Sex: Female

DRUGS (1)
  1. METHOTREXATE [Suspect]
     Route: 048

REACTIONS (1)
  - NON-CARDIOGENIC PULMONARY OEDEMA [None]
